FAERS Safety Report 18749489 (Version 5)
Quarter: 2021Q2

REPORT INFORMATION
  Report Type: Report from Study
  Country: US (occurrence: US)
  Receive Date: 20210116
  Receipt Date: 20210630
  Transmission Date: 20210717
  Serious: Yes (Other)
  Sender: FDA-Public Use
  Company Number: NVSC2021US006577

PATIENT
  Age: 58 Year
  Sex: Male

DRUGS (3)
  1. ENTRESTO [Suspect]
     Active Substance: SACUBITRIL\VALSARTAN
     Dosage: 200 MG, BID, 97/103 MG AM AND PM
     Route: 048
     Dates: start: 20201224
  2. ENTRESTO [Suspect]
     Active Substance: SACUBITRIL\VALSARTAN
     Indication: CARDIAC FAILURE CONGESTIVE
     Dosage: 97 MG, BID
     Route: 048
     Dates: start: 20200820
  3. ENTRESTO [Suspect]
     Active Substance: SACUBITRIL\VALSARTAN
     Dosage: 1.5 MG, QD (1/2 DF IN THE MORNING AND 1 DF IN EVENING)
     Route: 048
     Dates: start: 20201204

REACTIONS (4)
  - Therapeutic response unexpected [Recovering/Resolving]
  - Diabetes mellitus [Unknown]
  - Wrong technique in product usage process [Recovered/Resolved]
  - Weight increased [Recovered/Resolved]

NARRATIVE: CASE EVENT DATE: 2020
